FAERS Safety Report 4308969-0 (Version None)
Quarter: 2004Q1

REPORT INFORMATION
  Report Type: 
  Country: None (occurrence: None)
  Receive Date: 20040227
  Receipt Date: 20040109
  Transmission Date: 20041129
  Serious: Yes (Hospitalization)
  Sender: FDA-Public Use
  Company Number: GB-JNJFOC-20030701245

PATIENT
  Age: 48 Year
  Sex: Female

DRUGS (6)
  1. REMICADE [Suspect]
     Indication: RHEUMATOID ARTHRITIS
     Dosage: 260 MG, 1 IN 1 DAY, INTRAVENOUS
     Route: 042
     Dates: start: 20030110, end: 20030110
  2. REMICADE [Suspect]
     Indication: RHEUMATOID ARTHRITIS
     Dosage: 260 MG, 1 IN 1 DAY, INTRAVENOUS
     Route: 042
     Dates: start: 20030213, end: 20030213
  3. METHOTREXATE [Concomitant]
  4. MELOXICAM [Concomitant]
  5. DOTHIEPIN HYDROCHLORIDE [Concomitant]
  6. LANSOPRAZOLE [Concomitant]

REACTIONS (5)
  - AUTOIMMUNE HEPATITIS [None]
  - ENDOSCOPIC RETROGRADE CHOLANGIOPANCREATOGRAPHY ABNORMAL [None]
  - GASTROINTESTINAL OBSTRUCTION [None]
  - HEPATIC NECROSIS [None]
  - HEPATIC STEATOSIS [None]
